FAERS Safety Report 5265857-3 (Version None)
Quarter: 2007Q1

REPORT INFORMATION
  Report Type: 
  Country: None (occurrence: None)
  Receive Date: 20070312
  Receipt Date: 20070312
  Transmission Date: 20070707
  Serious: Yes (Hospitalization)
  Sender: FDA-Public Use
  Company Number: None

PATIENT
  Sex: Female
  Weight: 52.6173 kg

DRUGS (2)
  1. TRAMADOL HCL [Suspect]
     Indication: BACK PAIN
     Dosage: 50MG PRN EVERY 4-6 HOUR PO
     Route: 048
     Dates: start: 20060802, end: 20070126
  2. TRAMADOL HCL [Suspect]
     Indication: NECK PAIN
     Dosage: 50MG PRN EVERY 4-6 HOUR PO
     Route: 048
     Dates: start: 20060802, end: 20070126

REACTIONS (1)
  - CONVULSION [None]
